FAERS Safety Report 9067023 (Version 1)
Quarter: 2013Q1

REPORT INFORMATION
  Report Type: Spontaneous
  Country: US (occurrence: US)
  Receive Date: 20130214
  Receipt Date: 20130214
  Transmission Date: 20140127
  Serious: Yes (Hospitalization)
  Sender: FDA-Public Use
  Company Number: US-BAYER-2013-017212

PATIENT
  Age: 47 Year
  Sex: Female

DRUGS (7)
  1. IBUPROFEN [Concomitant]
  2. YASMIN [Suspect]
  3. PREDNISONE [Concomitant]
  4. AMOXIL [Concomitant]
     Indication: DYSPHONIA
  5. AMOXIL [Concomitant]
     Indication: COUGH
  6. CYMBALTA [Concomitant]
  7. VICODIN ES [Concomitant]
     Dosage: UNK UNK, HS

REACTIONS (2)
  - Arterial occlusive disease [None]
  - Iliac artery occlusion [None]
